FAERS Safety Report 5721647-6 (Version None)
Quarter: 2008Q2

REPORT INFORMATION
  Report Type: 
  Country: None (occurrence: None)
  Receive Date: 20080429
  Receipt Date: 20080416
  Transmission Date: 20081010
  Serious: Yes (Hospitalization)
  Sender: FDA-Public Use
  Company Number: AU-NOVOPROD-274360

PATIENT
  Sex: Male

DRUGS (2)
  1. NOVORAPID PENFILL [Suspect]
     Indication: DRUG USE FOR UNKNOWN INDICATION
  2. LANTUS [Concomitant]

REACTIONS (1)
  - AMPUTATION [None]
